APPROVED DRUG PRODUCT: TRIMETHOBENZAMIDE HYDROCHLORIDE
Active Ingredient: TRIMETHOBENZAMIDE HYDROCHLORIDE
Strength: 300MG
Dosage Form/Route: CAPSULE;ORAL
Application: A076546 | Product #001 | TE Code: AB
Applicant: LUPIN INC
Approved: Aug 20, 2003 | RLD: No | RS: No | Type: RX